FAERS Safety Report 7241963-9 (Version None)
Quarter: 2011Q1

REPORT INFORMATION
  Report Type: 
  Country: None (occurrence: None)
  Receive Date: 20110124
  Receipt Date: 20110113
  Transmission Date: 20110831
  Serious: Yes (Other)
  Sender: FDA-Public Use
  Company Number: US-JNJFOC-20110104323

PATIENT
  Age: 49 Year
  Sex: Female
  Weight: 61.24 kg

DRUGS (7)
  1. EXTRA STRENGTH TYLENOL [Concomitant]
     Indication: TENDONITIS
     Dosage: 1000 MG 2-3 TIMES A DAY
  2. UNKNOWN MEDICATION [Concomitant]
     Indication: BRONCHITIS CHRONIC
  3. EXTRA STRENGTH TYLENOL PM [Suspect]
     Indication: INSOMNIA
     Route: 048
  4. EXTRA STRENGTH TYLENOL [Concomitant]
     Indication: ARTHRITIS
     Dosage: 1000 MG 2-3 TIMES A DAY
  5. ATROVENT [Concomitant]
     Indication: ASTHMA
  6. EXTRA STRENGTH TYLENOL PM [Suspect]
     Indication: PAIN
     Route: 048
  7. EXTRA STRENGTH TYLENOL [Concomitant]
     Indication: CARPAL TUNNEL SYNDROME
     Dosage: 1000 MG 2-3 TIMES A DAY

REACTIONS (2)
  - TREMOR [None]
  - CONVULSION [None]
